FAERS Safety Report 7335010-8 (Version None)
Quarter: 2011Q1

REPORT INFORMATION
  Report Type: 
  Country: None (occurrence: None)
  Receive Date: 20110302
  Receipt Date: 20110302
  Transmission Date: 20110831
  Serious: Yes (Other)
  Sender: FDA-Public Use
  Company Number: None

PATIENT
  Age: 67 Year
  Sex: Female
  Weight: 68.0396 kg

DRUGS (1)
  1. FLUTICASONE PROPIONATE [Suspect]
     Indication: VIRAL INFECTION
     Dosage: 1 SPRAY IN EACH NOSTRIL 2 TIMES A DAY
     Dates: start: 20110210

REACTIONS (11)
  - ASTHENIA [None]
  - NASAL DISCOMFORT [None]
  - DYSPHAGIA [None]
  - OROPHARYNGEAL PAIN [None]
  - PRURITUS [None]
  - HEART RATE INCREASED [None]
  - EYE IRRITATION [None]
  - RETCHING [None]
  - BURNING SENSATION [None]
  - FLUSHING [None]
  - COUGH [None]
